FAERS Safety Report 25534825 (Version 1)
Quarter: 2025Q3

REPORT INFORMATION
  Report Type: Spontaneous
  Country: JP (occurrence: JP)
  Receive Date: 20250709
  Receipt Date: 20250709
  Transmission Date: 20251021
  Serious: Yes (Other)
  Sender: PFIZER
  Company Number: JP-PFIZER INC-PV202500080152

PATIENT

DRUGS (1)
  1. FOSPHENYTOIN SODIUM [Suspect]
     Active Substance: FOSPHENYTOIN SODIUM
     Indication: Tonic convulsion
     Route: 042

REACTIONS (3)
  - Cardiac arrest [Unknown]
  - Incorrect drug administration rate [Unknown]
  - Product prescribing error [Unknown]
